FAERS Safety Report 18750840 (Version 1)
Quarter: 2021Q1

REPORT INFORMATION
  Report Type: Spontaneous
  Country: US (occurrence: US)
  Receive Date: 20210118
  Receipt Date: 20210118
  Transmission Date: 20210419
  Serious: Yes (Death, Hospitalization, Other)
  Sender: FDA-Public Use
  Company Number: US-LUPIN PHARMACEUTICALS INC.-2021-00198

PATIENT
  Age: 62 Year
  Sex: Female

DRUGS (2)
  1. METFORMIN [Suspect]
     Active Substance: METFORMIN HYDROCHLORIDE
     Indication: PRODUCT USED FOR UNKNOWN INDICATION
     Dosage: UNK
     Route: 065
  2. METFORMIN [Suspect]
     Active Substance: METFORMIN HYDROCHLORIDE
     Dosage: 270 GRAM
     Route: 048

REACTIONS (8)
  - Completed suicide [Fatal]
  - Intentional overdose [Fatal]
  - Metabolic acidosis [Not Recovered/Not Resolved]
  - Vomiting [Unknown]
  - Hyperglycaemia [Recovering/Resolving]
  - Lactic acidosis [Not Recovered/Not Resolved]
  - Cardiac arrest [Fatal]
  - Hypotension [Not Recovered/Not Resolved]
